FAERS Safety Report 9797161 (Version 1)
Quarter: 2014Q1

REPORT INFORMATION
  Report Type: Report from Study
  Country: US (occurrence: US)
  Receive Date: 20140106
  Receipt Date: 20140106
  Transmission Date: 20141002
  Serious: Yes (Other)
  Sender: FDA-Public Use
  Company Number: US-ROCHE-1329050

PATIENT
  Sex: 0

DRUGS (3)
  1. PEG-INTERFERON ALFA 2A [Suspect]
     Indication: CHRONIC HEPATITIS C
     Route: 058
  2. RIBAVIRIN [Suspect]
     Indication: CHRONIC HEPATITIS C
     Dosage: DOSE: 1000- 1200 MG (WEIGHT BASED) DAILY
     Route: 048
  3. IDX184 (HCV POLYMERASE INHIBITOR) [Suspect]
     Indication: CHRONIC HEPATITIS C
     Dosage: ONCE DAILY
     Route: 065

REACTIONS (1)
  - Cholecystitis acute [Unknown]
